FAERS Safety Report 5083944-X (Version None)
Quarter: 2006Q3

REPORT INFORMATION
  Report Type: 
  Country: None (occurrence: None)
  Receive Date: 20060727
  Receipt Date: 20060522
  Transmission Date: 20061208
  Serious: Yes (Other)
  Sender: FDA-Public Use
  Company Number: 2006068015

PATIENT
  Age: 85 Year
  Sex: Male
  Weight: 70.3075 kg

DRUGS (3)
  1. LYRICA [Suspect]
     Indication: PAIN
     Dosage: 200 MG (3 IN 1 D), UNKNOWN
     Dates: start: 20060101
  2. WARFARIN SODIUM [Concomitant]
  3. CRESTOR [Concomitant]

REACTIONS (3)
  - ASTHENIA [None]
  - TREMOR [None]
  - VISION BLURRED [None]
